FAERS Safety Report 9397076 (Version 1)
Quarter: 2013Q3

REPORT INFORMATION
  Report Type: Spontaneous
  Country: US (occurrence: None)
  Receive Date: 20130710
  Receipt Date: 20130710
  Transmission Date: 20140515
  Serious: Yes (Hospitalization)
  Sender: FDA-Public Use
  Company Number: None

PATIENT
  Age: 63 Year
  Sex: Female
  Weight: 63.05 kg

DRUGS (3)
  1. PROLIA [Suspect]
  2. I-THYROXINE [Concomitant]
  3. SIMVASTATIN [Concomitant]

REACTIONS (7)
  - Asthenia [None]
  - Lethargy [None]
  - Dizziness [None]
  - Chest discomfort [None]
  - Dyspnoea [None]
  - Speech disorder [None]
  - Economic problem [None]
